FAERS Safety Report 8859439 (Version 2)
Quarter: 2012Q4

REPORT INFORMATION
  Report Type: 
  Country: US (occurrence: US)
  Receive Date: 20121024
  Receipt Date: 20121205
  Transmission Date: 20130627
  Serious: Yes (Hospitalization)
  Sender: FDA-Public Use
  Company Number: US-GILEAD-2012-0063458

PATIENT
  Sex: Female

DRUGS (4)
  1. LETAIRIS [Suspect]
     Indication: COR PULMONALE CHRONIC
     Dosage: 10 mg, QD
     Route: 048
     Dates: start: 20080720
  2. LETAIRIS [Suspect]
     Indication: PULMONARY HYPERTENSION
  3. LETAIRIS [Suspect]
     Indication: UNEVALUABLE EVENT
  4. REMODULIN [Concomitant]

REACTIONS (2)
  - Cardiac failure congestive [Unknown]
  - Dyspnoea [Unknown]
